FAERS Safety Report 5581178-3 (Version None)
Quarter: 2007Q4

REPORT INFORMATION
  Report Type: 
  Country: None (occurrence: None)
  Receive Date: 20071227
  Receipt Date: 20071214
  Transmission Date: 20080405
  Serious: Yes (Other)
  Sender: FDA-Public Use
  Company Number: GXKR2007DK10823

PATIENT
  Age: 61 Year
  Sex: Male
  Weight: 53 kg

DRUGS (1)
  1. VIBRADOX (NGX)(DOXYCYCLINE) UNKNOWN [Suspect]
     Indication: INFECTION
     Dosage: 100 MG/D, ORAL
     Route: 048
     Dates: start: 20071101, end: 20071101

REACTIONS (2)
  - INTESTINAL HAEMORRHAGE [None]
  - MOUTH HAEMORRHAGE [None]
